FAERS Safety Report 21756510 (Version 3)
Quarter: 2023Q1

REPORT INFORMATION
  Report Type: Spontaneous
  Country: TR (occurrence: None)
  Receive Date: 20221220
  Receipt Date: 20230102
  Transmission Date: 20230418
  Serious: Yes (Other)
  Sender: FDA-Public Use
  Company Number: 2022A402326

PATIENT
  Age: 22864 Day
  Sex: Female
  Weight: 86 kg

DRUGS (12)
  1. BYETTA [Suspect]
     Active Substance: EXENATIDE
     Dosage: BY INJECTION IN THE MORNING AND EVENING
     Route: 065
  2. BYETTA [Suspect]
     Active Substance: EXENATIDE
     Dosage: BY INJECTION IN THE MORNING AND EVENING
     Route: 065
     Dates: start: 20221128, end: 20221205
  3. LANTUS [Concomitant]
     Active Substance: INSULIN GLARGINE
     Indication: Diabetes mellitus
     Route: 065
  4. SYNJARDY [Concomitant]
     Active Substance: EMPAGLIFLOZIN\METFORMIN HYDROCHLORIDE
     Indication: Diabetes mellitus
  5. EUTHYROX [Concomitant]
     Active Substance: LEVOTHYROXINE SODIUM
     Indication: Hypothyroidism
     Dosage: 50 MG ONCE A DAY ON WEEKDAYS
     Route: 048
  6. EUTHYROX [Concomitant]
     Active Substance: LEVOTHYROXINE SODIUM
     Indication: Hypothyroidism
     Dosage: 75 MG ONCE A DAY ON WEEKENDS
     Route: 048
  7. ROVARAN [Concomitant]
     Indication: Brain neoplasm benign
     Dosage: 15 MG ONCE A DAY
  8. HYDROCHLOROTHIAZIDE\IRBESARTAN [Concomitant]
     Active Substance: HYDROCHLOROTHIAZIDE\IRBESARTAN
  9. ASPIRIN [Concomitant]
     Active Substance: ASPIRIN
     Route: 048
  10. METOPROLOL [Concomitant]
     Active Substance: METOPROLOL
  11. LANSOPRAZOLE [Concomitant]
     Active Substance: LANSOPRAZOLE
     Route: 048
  12. LERCANIDIPINE HYDROCHLORIDE [Concomitant]
     Active Substance: LERCANIDIPINE HYDROCHLORIDE
     Route: 048

REACTIONS (16)
  - Arrhythmia [Recovering/Resolving]
  - Angina pectoris [Recovering/Resolving]
  - Back pain [Recovering/Resolving]
  - Blood pressure increased [Recovering/Resolving]
  - Somnolence [Recovering/Resolving]
  - Dizziness [Recovering/Resolving]
  - Nausea [Recovered/Resolved]
  - Urinary incontinence [Recovering/Resolving]
  - Blood glucose increased [Recovering/Resolving]
  - Body temperature decreased [Recovering/Resolving]
  - Dysstasia [Unknown]
  - Blood glucose decreased [Not Recovered/Not Resolved]
  - Asthenia [Unknown]
  - Dyspnoea [Unknown]
  - Insomnia [Unknown]
  - Pain in extremity [Unknown]

NARRATIVE: CASE EVENT DATE: 20221130
